FAERS Safety Report 21140840 (Version 2)
Quarter: 2022Q3

REPORT INFORMATION
  Report Type: Spontaneous
  Country: US (occurrence: US)
  Receive Date: 20220728
  Receipt Date: 20220831
  Transmission Date: 20221027
  Serious: No
  Sender: FDA-Public Use
  Company Number: US-AMGEN-USASP2022127728

PATIENT
  Sex: Male

DRUGS (2)
  1. OTEZLA [Suspect]
     Active Substance: APREMILAST
     Indication: Psoriasis
     Dosage: TWO TAKE  ONE TABLET BY MOUTH TWICE
     Route: 048
     Dates: start: 20220526
  2. OTEZLA [Suspect]
     Active Substance: APREMILAST
     Dosage: RX#TWO TAKE  ONE TABLET BY MOUTH TWICE
     Route: 048

REACTIONS (1)
  - Product dose omission issue [Unknown]

NARRATIVE: CASE EVENT DATE: 20220101
